FAERS Safety Report 18323024 (Version 1)
Quarter: 2020Q3

REPORT INFORMATION
  Report Type: Spontaneous
  Country: CA (occurrence: CA)
  Receive Date: 20200928
  Receipt Date: 20200928
  Transmission Date: 20201103
  Serious: Yes (Other)
  Sender: FDA-Public Use
  Company Number: CA-JNJFOC-20200934500

PATIENT
  Age: 61 Year
  Sex: Male

DRUGS (4)
  1. ROSUVASTATIN CALCIUM. [Concomitant]
     Active Substance: ROSUVASTATIN CALCIUM
     Route: 065
  2. INFLIXIMAB, RECOMBINANT [Suspect]
     Active Substance: INFLIXIMAB
     Indication: COLITIS ULCERATIVE
     Route: 042
  3. PREDNISONE. [Concomitant]
     Active Substance: PREDNISONE
     Route: 048
  4. WELLBUTRIN [Concomitant]
     Active Substance: BUPROPION HYDROCHLORIDE
     Route: 065

REACTIONS (13)
  - Heart rate decreased [Unknown]
  - Gait disturbance [Unknown]
  - Cough [Unknown]
  - Inappropriate schedule of product administration [Unknown]
  - Pain [Unknown]
  - Dyspnoea [Unknown]
  - Wheezing [Unknown]
  - Blood pressure fluctuation [Unknown]
  - Off label use [Unknown]
  - Arthralgia [Unknown]
  - Condition aggravated [Unknown]
  - Pneumonia [Unknown]
  - Pyrexia [Unknown]
